FAERS Safety Report 14979873 (Version 1)
Quarter: 2018Q2

REPORT INFORMATION
  Report Type: Spontaneous
  Country: FR (occurrence: FR)
  Receive Date: 20180606
  Receipt Date: 20180606
  Transmission Date: 20180711
  Serious: Yes (Other)
  Sender: FDA-Public Use
  Company Number: FR-TEVA-2018-FR-901785

PATIENT
  Age: 78 Year
  Sex: Male

DRUGS (4)
  1. DUTASTERIDE BIOGARAN 0.5 MG, CAPSULE MOLLE [Suspect]
     Active Substance: DUTASTERIDE
     Indication: BENIGN PROSTATIC HYPERPLASIA
     Dosage: 1 DOSAGE FORMS DAILY;
     Route: 048
     Dates: start: 20171020, end: 20171208
  2. PAROXETINE EG 20 MG, COMPRIM? PELLICUL? S?CABLE [Concomitant]
     Dosage: 1 DOSAGE FORMS DAILY;
     Route: 048
  3. CHOLECALCIFEROL SANDOZ 100 000 UI, SOLUTION BUVABLE EN AMPOULE [Concomitant]
     Route: 048
  4. DUTASTERIDE. [Suspect]
     Active Substance: DUTASTERIDE
     Indication: BENIGN PROSTATIC HYPERPLASIA
     Dosage: .5 MILLIGRAM DAILY;
     Route: 048
     Dates: start: 20171209, end: 201803

REACTIONS (2)
  - Blepharitis [Not Recovered/Not Resolved]
  - Eyelid oedema [Not Recovered/Not Resolved]

NARRATIVE: CASE EVENT DATE: 201711
